FAERS Safety Report 17489088 (Version 1)
Quarter: 2020Q1

REPORT INFORMATION
  Report Type: Spontaneous
  Country: US (occurrence: US)
  Receive Date: 20200303
  Receipt Date: 20200303
  Transmission Date: 20200409
  Serious: No
  Sender: FDA-Public Use
  Company Number: US-PERRIGO-19US006722

PATIENT
  Age: 39 Year
  Sex: Female
  Weight: 62.59 kg

DRUGS (1)
  1. NAPROXEN SODIUM. [Suspect]
     Active Substance: NAPROXEN SODIUM
     Indication: PAIN
     Dosage: 440 MG, FOUR TIMES
     Route: 048
     Dates: start: 20190528, end: 20190528

REACTIONS (3)
  - Overdose [Recovered/Resolved]
  - Drug ineffective [Unknown]
  - Muscle spasms [Unknown]

NARRATIVE: CASE EVENT DATE: 201905
